FAERS Safety Report 14538732 (Version 1)
Quarter: 2018Q1

REPORT INFORMATION
  Report Type: Spontaneous
  Country: US (occurrence: US)
  Receive Date: 20180216
  Receipt Date: 20180216
  Transmission Date: 20180509
  Serious: No
  Sender: FDA-Public Use
  Company Number: US-ENDO PHARMACEUTICALS INC-2017-008611

PATIENT
  Sex: Male

DRUGS (1)
  1. VIGABATRIN. [Suspect]
     Active Substance: VIGABATRIN
     Indication: SEIZURE
     Dosage: 15 ML IN THE MORNING AND 10ML IN EVENING, BID
     Route: 065
     Dates: start: 2017

REACTIONS (2)
  - Crying [Unknown]
  - Nervousness [Unknown]

NARRATIVE: CASE EVENT DATE: 2017
